FAERS Safety Report 22232157 (Version 1)
Quarter: 2023Q2

REPORT INFORMATION
  Report Type: Spontaneous
  Country: US (occurrence: None)
  Receive Date: 20230420
  Receipt Date: 20230420
  Transmission Date: 20230722
  Serious: No
  Sender: FDA-Public Use
  Company Number: US-ROCHE-3212417

PATIENT
  Age: 71 Year
  Sex: Male

DRUGS (2)
  1. ESBRIET [Suspect]
     Active Substance: PIRFENIDONE
     Indication: Idiopathic pulmonary fibrosis
     Dosage: 2 TABLETS, 267MG PER TAB, THREE TIMES PER DAY WITH MEALS?3 TABLETS, 267MG/TAB, THREE TIMES A DAY WIT
     Route: 048
     Dates: start: 20221022
  2. ESBRIET [Suspect]
     Active Substance: PIRFENIDONE
     Indication: Interstitial lung disease

REACTIONS (12)
  - Abdominal discomfort [Recovered/Resolved]
  - Pain [Recovered/Resolved]
  - Feeling cold [Recovered/Resolved]
  - Insomnia [Not Recovered/Not Resolved]
  - Nasal congestion [Not Recovered/Not Resolved]
  - Feeling abnormal [Recovering/Resolving]
  - Fatigue [Not Recovered/Not Resolved]
  - Nausea [Not Recovered/Not Resolved]
  - Ear congestion [Not Recovered/Not Resolved]
  - Eructation [Not Recovered/Not Resolved]
  - Eructation [Not Recovered/Not Resolved]
  - Stomach mass [Recovering/Resolving]

NARRATIVE: CASE EVENT DATE: 20221024
